FAERS Safety Report 7222765 (Version 4)
Quarter: 2014Q1

REPORT INFORMATION
  Report Type: Report from Study
  Country: CA (occurrence: CA)
  Receive Date: 20091218
  Receipt Date: 20140109
  Transmission Date: 20141002
  Serious: Yes (Death, Hospitalization, Other)
  Sender: FDA-Public Use
  Company Number: PHHY2009CA48086

PATIENT
  Age: 87 Year
  Sex: Female

DRUGS (13)
  1. ACLASTA/ZOLEDRONATE [Suspect]
     Indication: OSTEOPOROSIS
     Dosage: 5MG/100ML PER YEAR
     Route: 042
     Dates: start: 20081106
  2. ACLASTA/ZOLEDRONATE [Suspect]
     Dosage: 5MG/100ML PER YEAR
     Route: 042
     Dates: start: 20091102
  3. ACLASTA/ZOLEDRONATE [Suspect]
     Dosage: 5MG/100ML PER YEAR
     Route: 042
     Dates: start: 20101210
  4. ACLASTA/ZOLEDRONATE [Suspect]
     Dosage: 5MG/100ML PER YEAR
     Route: 042
     Dates: start: 20120320
  5. ACLASTA/ZOLEDRONATE [Suspect]
     Dosage: 5MG/100ML PER YEAR
     Route: 042
     Dates: start: 20130128
  6. ACTONEL [Concomitant]
     Dosage: 35 UKN, WEEKLY
     Dates: start: 20040907, end: 20080828
  7. DIDROCAL [Concomitant]
     Dosage: 400 MG, DAILY
  8. EVISTA [Concomitant]
     Dosage: 670 MG, DAILY
  9. HORMONES AND RELATED AGENTS (HRT) [Concomitant]
     Dosage: UNK UKN, UNK
  10. FORTEO [Concomitant]
     Dosage: 20 MG, DAILY
  11. MIACALCIN [Concomitant]
     Dosage: 200 IU,DAILY
     Route: 045
  12. VITAMIN D [Concomitant]
     Dosage: 1000 MG, QD
     Dates: start: 2004
  13. CALCIUM [Concomitant]
     Dosage: 200 MG, QD

REACTIONS (3)
  - Death [Fatal]
  - Pelvic fracture [Recovered/Resolved]
  - Fall [Unknown]
